FAERS Safety Report 15097579 (Version 1)
Quarter: 2018Q2

REPORT INFORMATION
  Report Type: Spontaneous
  Country: US (occurrence: US)
  Receive Date: 20180610
  Receipt Date: 20180610
  Transmission Date: 20180711
  Serious: Yes (Other)
  Sender: FDA-Public Use
  Company Number: None

PATIENT
  Age: 26 Year
  Sex: Female
  Weight: 92.08 kg

DRUGS (7)
  1. PURE BAKING SODA [Concomitant]
     Active Substance: SODIUM BICARBONATE
  2. GOLD BONE ECZEMA RELIEF LOTION [Concomitant]
  3. RUBBING ALCOHOL [Concomitant]
     Active Substance: ISOPROPYL ALCOHOL
  4. PEROXIDE [Concomitant]
     Active Substance: HYDROGEN PEROXIDE
  5. IUD NOS [Suspect]
     Active Substance: COPPER OR LEVONORGESTREL
     Dates: start: 20180326
  6. OATMEAL SOAP [Concomitant]
  7. ANTIHISTAMINES [Concomitant]
     Active Substance: ANTIHISTAMINES NOS

REACTIONS (1)
  - Rash [None]

NARRATIVE: CASE EVENT DATE: 20180419
